FAERS Safety Report 13899227 (Version 2)
Quarter: 2017Q3

REPORT INFORMATION
  Report Type: Spontaneous
  Country: NO (occurrence: NO)
  Receive Date: 20170824
  Receipt Date: 20170828
  Transmission Date: 20171127
  Serious: Yes (Hospitalization, Other)
  Sender: FDA-Public Use
  Company Number: NO-PFIZER INC-2017078015

PATIENT
  Age: 75 Year
  Sex: Male

DRUGS (8)
  1. LIPITOR [Suspect]
     Active Substance: ATORVASTATIN CALCIUM
     Indication: HYPERCHOLESTEROLAEMIA
     Dosage: 40 MG, 1X/DAY
     Route: 048
     Dates: start: 20121130, end: 20160803
  2. SOMAC [Concomitant]
     Active Substance: PANTOPRAZOLE SODIUM
     Indication: GASTROOESOPHAGEAL REFLUX DISEASE
     Dosage: 40 MG, AS NEEDED (1 TABLET AS NECESSARY)
     Route: 048
     Dates: start: 20130930
  3. METFORMIN [Concomitant]
     Active Substance: METFORMIN HYDROCHLORIDE
     Indication: TYPE 2 DIABETES MELLITUS
     Dosage: 1 G, 2X/DAY
     Route: 048
     Dates: start: 20121130, end: 20170220
  4. MAREVAN [Concomitant]
     Active Substance: WARFARIN SODIUM
     Indication: ATRIAL FIBRILLATION
     Dosage: 2.5 MG, UNK (19 TABLETS PER WEEK)
     Route: 048
     Dates: start: 20121130, end: 20170123
  5. METOPROLOL TARTRATE. [Concomitant]
     Active Substance: METOPROLOL TARTRATE
     Indication: CARDIAC DISORDER
     Dosage: 50 MG, 1X/DAY
     Route: 048
  6. ZOLPIDEM [Concomitant]
     Active Substance: ZOLPIDEM\ZOLPIDEM TARTRATE
     Dosage: 10 MG, AS NEEDED (1 TABLET AS NECESSARY)
     Route: 048
     Dates: start: 2012
  7. METFORMIN [Concomitant]
     Active Substance: METFORMIN HYDROCHLORIDE
     Dosage: UNK
     Dates: start: 20170221
  8. ALBYL-E [Concomitant]
     Active Substance: ASPIRIN\MAGNESIUM OXIDE
     Indication: MYOCARDIAL INFARCTION
     Dosage: 75 MG, 1X/DAY
     Route: 048
     Dates: start: 20121130

REACTIONS (4)
  - Polymyositis [Unknown]
  - Aspartate aminotransferase increased [Unknown]
  - Myopathy [Recovered/Resolved]
  - Alanine aminotransferase increased [Unknown]

NARRATIVE: CASE EVENT DATE: 201608
